FAERS Safety Report 17667088 (Version 1)
Quarter: 2020Q2

REPORT INFORMATION
  Report Type: Spontaneous
  Country: RO (occurrence: RO)
  Receive Date: 20200414
  Receipt Date: 20200414
  Transmission Date: 20200713
  Serious: Yes (Other)
  Sender: FDA-Public Use
  Company Number: RO-MYLANLABS-2020M1037580

PATIENT
  Age: 62 Year

DRUGS (4)
  1. IBRANCE [Suspect]
     Active Substance: PALBOCICLIB
     Indication: BREAST CANCER
     Dosage: 125 MG, DAILY
     Dates: start: 20180222
  2. CDDP [Concomitant]
     Active Substance: CISPLATIN
     Dosage: UNK UNK, WEEKLY
  3. LETROZOLE. [Suspect]
     Active Substance: LETROZOLE
     Indication: BREAST CANCER
     Dosage: UNK
     Dates: start: 20180222
  4. IBANDRONIC ACID. [Concomitant]
     Active Substance: IBANDRONIC ACID
     Dosage: Q 28 DAYS

REACTIONS (13)
  - Second primary malignancy [Unknown]
  - Neutropenia [Unknown]
  - Infection [Unknown]
  - Urogenital fistula [Recovered/Resolved]
  - Squamous cell carcinoma of the cervix [Unknown]
  - Human papilloma virus test positive [Unknown]
  - Thrombocytopenia [Unknown]
  - Pyrexia [Unknown]
  - Neoplasm progression [Unknown]
  - Cough [Unknown]
  - Asthenia [Unknown]
  - Anaemia [Unknown]
  - Lymphangitis [Unknown]

NARRATIVE: CASE EVENT DATE: 20180510
